FAERS Safety Report 6190725-2 (Version None)
Quarter: 2009Q2

REPORT INFORMATION
  Report Type: 
  Country: None (occurrence: None)
  Receive Date: 20090514
  Receipt Date: 20090514
  Transmission Date: 20091009
  Serious: Yes (Other)
  Sender: FDA-Public Use
  Company Number: US-PFIZER INC-2008095592

PATIENT
  Age: 2 Month
  Sex: Male
  Weight: 15 kg

DRUGS (1)
  1. VIAGRA [Suspect]
     Indication: PULMONARY HYPERTENSION

REACTIONS (2)
  - HEPATIC FAILURE [None]
  - RENAL FAILURE [None]
